FAERS Safety Report 16742980 (Version 3)
Quarter: 2020Q3

REPORT INFORMATION
  Report Type: Spontaneous
  Country: CA (occurrence: CA)
  Receive Date: 20190827
  Receipt Date: 20200706
  Transmission Date: 20201102
  Serious: Yes (Other)
  Sender: FDA-Public Use
  Company Number: CA-ABBVIE-19K-028-2898353-00

PATIENT
  Sex: Male

DRUGS (13)
  1. VITAMIN D3 [Suspect]
     Active Substance: CHOLECALCIFEROL
     Indication: PRODUCT USED FOR UNKNOWN INDICATION
     Route: 065
  2. PROBIOTIC [Suspect]
     Active Substance: PROBIOTICS NOS
     Indication: PRODUCT USED FOR UNKNOWN INDICATION
     Route: 065
  3. VERSED [Suspect]
     Active Substance: MIDAZOLAM HYDROCHLORIDE
     Indication: SEDATION
     Route: 065
  4. FENTANYL. [Suspect]
     Active Substance: FENTANYL
     Indication: SEDATION
     Route: 065
     Dates: start: 20190328, end: 20190328
  5. MIDAZOLAM. [Suspect]
     Active Substance: MIDAZOLAM
     Indication: PRODUCT USED FOR UNKNOWN INDICATION
     Route: 065
  6. PENTASA [Suspect]
     Active Substance: MESALAMINE
     Indication: PRODUCT USED FOR UNKNOWN INDICATION
     Dosage: QHS
     Route: 065
  7. MIDAZOLAM HYDROCHLORIDE. [Suspect]
     Active Substance: MIDAZOLAM HYDROCHLORIDE
     Indication: SEDATION
     Route: 065
  8. HUMIRA [Suspect]
     Active Substance: ADALIMUMAB
     Indication: COLITIS ULCERATIVE
     Route: 058
  9. CALCIUM CARBONATE. [Suspect]
     Active Substance: CALCIUM CARBONATE
     Indication: PRODUCT USED FOR UNKNOWN INDICATION
     Route: 065
  10. PENTASA [Suspect]
     Active Substance: MESALAMINE
     Dosage: QHS
     Route: 065
  11. ENTYVIO [Suspect]
     Active Substance: VEDOLIZUMAB
     Indication: PRODUCT USED FOR UNKNOWN INDICATION
     Route: 042
  12. BIFIDOBACTERIUM ANIMALIS SUBSP. ANIMALIS [Suspect]
     Active Substance: PROBIOTICS NOS
     Indication: PRODUCT USED FOR UNKNOWN INDICATION
     Route: 065
  13. PREDNISONE. [Suspect]
     Active Substance: PREDNISONE
     Indication: PRODUCT USED FOR UNKNOWN INDICATION
     Route: 048

REACTIONS (17)
  - Mouth ulceration [Recovered/Resolved]
  - Drug ineffective [Unknown]
  - Lung hyperinflation [Recovered/Resolved]
  - Adverse drug reaction [Recovered/Resolved]
  - Anorectal disorder [Unknown]
  - Pain [Unknown]
  - Drug ineffective [Recovered/Resolved]
  - Acrochordon [Recovered/Resolved]
  - Granuloma [Recovered/Resolved]
  - Frequent bowel movements [Recovered/Resolved]
  - Anorectal discomfort [Recovered/Resolved]
  - Proctalgia [Recovered/Resolved]
  - Calcinosis [Recovered/Resolved]
  - Dyschezia [Recovered/Resolved]
  - Colitis ulcerative [Recovered/Resolved]
  - Colitis [Recovered/Resolved]
  - Mucous stools [Recovered/Resolved]

NARRATIVE: CASE EVENT DATE: 201903
